FAERS Safety Report 4619174-2 (Version None)
Quarter: 2005Q1

REPORT INFORMATION
  Report Type: 
  Country: None (occurrence: None)
  Receive Date: 20050325
  Receipt Date: 20030506
  Transmission Date: 20050727
  Serious: Yes (Hospitalization)
  Sender: FDA-Public Use
  Company Number: FR-BRISTOL-MYERS SQUIBB COMPANY-12269635

PATIENT
  Age: 76 Year
  Sex: Male
  Weight: 86 kg

DRUGS (5)
  1. ELISOR TABS [Suspect]
     Route: 048
  2. SELOKEN [Suspect]
     Route: 048
  3. TRIATEC [Suspect]
     Route: 048
  4. KARDEGIC [Suspect]
     Route: 048
     Dates: end: 20030401
  5. LAMALINE [Suspect]
     Route: 048
     Dates: start: 20030227, end: 20030314

REACTIONS (2)
  - THROMBOCYTOPENIA [None]
  - TREATMENT NONCOMPLIANCE [None]
